FAERS Safety Report 6613445-6 (Version None)
Quarter: 2010Q1

REPORT INFORMATION
  Report Type: 
  Country: None (occurrence: None)
  Receive Date: 20100224
  Receipt Date: 20090916
  Transmission Date: 20100710
  Serious: Yes (Other)
  Sender: FDA-Public Use
  Company Number: WAES 0909USA04078

PATIENT
  Age: 49 Year
  Sex: Male
  Weight: 83.9154 kg

DRUGS (2)
  1. ZOCOR [Suspect]
     Dosage: PO
     Route: 048
     Dates: start: 20080602, end: 20090820
  2. TERBINAFINE HCL [Concomitant]

REACTIONS (1)
  - MYALGIA [None]
